FAERS Safety Report 22199341 (Version 1)
Quarter: 2023Q2

REPORT INFORMATION
  Report Type: Spontaneous
  Country: GB (occurrence: GB)
  Receive Date: 20230411
  Receipt Date: 20230411
  Transmission Date: 20230721
  Serious: No
  Sender: FDA-Public Use
  Company Number: GB-MHRA-MED-202204052138133270-3GK9I

PATIENT
  Sex: Male

DRUGS (3)
  1. QUETIAPINE FUMARATE [Suspect]
     Active Substance: QUETIAPINE FUMARATE
     Indication: Intrusive thoughts
     Dosage: 50 MILLIGRAM
     Route: 065
     Dates: start: 202202, end: 202202
  2. QUETIAPINE FUMARATE [Suspect]
     Active Substance: QUETIAPINE FUMARATE
     Dosage: 100 MILLIGRAM
     Route: 065
     Dates: start: 202202, end: 202202
  3. QUETIAPINE FUMARATE [Suspect]
     Active Substance: QUETIAPINE FUMARATE
     Dosage: UNK
     Route: 065

REACTIONS (3)
  - Irritability [Recovering/Resolving]
  - Anger [Recovering/Resolving]
  - Paranoia [Recovering/Resolving]
